FAERS Safety Report 7524884-3 (Version None)
Quarter: 2011Q2

REPORT INFORMATION
  Report Type: 
  Country: None (occurrence: None)
  Receive Date: 20110606
  Receipt Date: 20110524
  Transmission Date: 20111010
  Serious: Yes (Other)
  Sender: FDA-Public Use
  Company Number: CH-JNJFOC-20110509385

PATIENT
  Age: 67 Year
  Sex: Male

DRUGS (11)
  1. MORPHINE [Suspect]
     Indication: PAIN
     Route: 065
  2. ACETAMINOPHEN [Suspect]
     Indication: ANALGESIC THERAPY
     Route: 065
  3. METOCLOPRAMIDE [Suspect]
     Indication: PRODUCT USED FOR UNKNOWN INDICATION
     Route: 065
  4. METAMIZOL [Suspect]
     Indication: PAIN
     Route: 065
  5. HEPARIN [Suspect]
     Indication: PRODUCT USED FOR UNKNOWN INDICATION
     Route: 065
  6. PANTOPRAZOLE [Suspect]
     Indication: PRODUCT USED FOR UNKNOWN INDICATION
     Route: 042
  7. ATORVASTATIN [Suspect]
     Indication: PRODUCT USED FOR UNKNOWN INDICATION
     Route: 048
  8. FENTANYL CITRATE [Suspect]
     Indication: POSTOPERATIVE ANALGESIA
     Route: 042
  9. PIPERACILLIN [Suspect]
     Indication: PRODUCT USED FOR UNKNOWN INDICATION
     Route: 065
  10. ACETAMINOPHEN [Suspect]
     Route: 065
  11. TAZOBACTAM [Suspect]
     Indication: PRODUCT USED FOR UNKNOWN INDICATION
     Route: 065

REACTIONS (1)
  - ANAESTHETIC COMPLICATION NEUROLOGICAL [None]
